FAERS Safety Report 6877156-4 (Version None)
Quarter: 2010Q3

REPORT INFORMATION
  Report Type: 
  Country: None (occurrence: None)
  Receive Date: 20100727
  Receipt Date: 20100714
  Transmission Date: 20110219
  Serious: Yes (Other)
  Sender: FDA-Public Use
  Company Number: JP-WATSON-2010-08913

PATIENT
  Sex: Male

DRUGS (3)
  1. RAPAFLO [Suspect]
     Indication: BENIGN PROSTATIC HYPERPLASIA
     Dosage: 4 MG, DAILY
     Route: 048
     Dates: start: 20100623, end: 20100623
  2. MOBIC [Suspect]
     Indication: CHEST PAIN
     Dosage: UNK
     Route: 048
     Dates: start: 20100623
  3. MOBIC [Suspect]
     Indication: BACK PAIN

REACTIONS (5)
  - APHAGIA [None]
  - DEHYDRATION [None]
  - DIARRHOEA [None]
  - MALAISE [None]
  - NAUSEA [None]
